FAERS Safety Report 17467736 (Version 1)
Quarter: 2020Q1

REPORT INFORMATION
  Report Type: Spontaneous
  Country: FR (occurrence: FR)
  Receive Date: 20200227
  Receipt Date: 20200227
  Transmission Date: 20200409
  Serious: Yes (Hospitalization)
  Sender: FDA-Public Use
  Company Number: FR-JNJFOC-20200235554

PATIENT
  Age: 81 Year
  Sex: Female
  Weight: 72 kg

DRUGS (5)
  1. ATORVASTATINE ACCORD [Concomitant]
     Active Substance: ATORVASTATIN
     Route: 048
  2. BISOPROLOL BGR [Concomitant]
     Route: 048
     Dates: end: 20200113
  3. RIVAROXABAN [Suspect]
     Active Substance: RIVAROXABAN
     Indication: ATRIAL FIBRILLATION
     Route: 048
     Dates: start: 20200113, end: 20200124
  4. ESCITALOPRAM ALMUS [Concomitant]
     Active Substance: ESCITALOPRAM OXALATE
     Dosage: 1 DF, QD
     Route: 048
  5. APROVEL [Concomitant]
     Active Substance: IRBESARTAN
     Route: 048

REACTIONS (1)
  - Vertigo [Recovering/Resolving]

NARRATIVE: CASE EVENT DATE: 20200120
